FAERS Safety Report 21081029 (Version 3)
Quarter: 2022Q3

REPORT INFORMATION
  Report Type: Spontaneous
  Country: US (occurrence: US)
  Receive Date: 20220714
  Receipt Date: 20220825
  Transmission Date: 20221027
  Serious: No
  Sender: FDA-Public Use
  Company Number: US-GLAXOSMITHKLINE-US2022104874

PATIENT
  Sex: Female

DRUGS (3)
  1. ZEJULA [Suspect]
     Active Substance: NIRAPARIB
     Indication: Ovarian cancer
     Dosage: 200 MG, QD (QPM)
     Dates: start: 20220624
  2. ZEJULA [Suspect]
     Active Substance: NIRAPARIB
     Dosage: UNK (DOSE DECREASED)
  3. ZEJULA [Suspect]
     Active Substance: NIRAPARIB
     Dosage: 200 MG, QD
     Route: 048
     Dates: start: 202208

REACTIONS (12)
  - Anxiety [Unknown]
  - Pain [Unknown]
  - Nausea [Not Recovered/Not Resolved]
  - Fatigue [Not Recovered/Not Resolved]
  - Full blood count abnormal [Unknown]
  - Carbohydrate antigen 125 increased [Unknown]
  - Malaise [Unknown]
  - Drug intolerance [Unknown]
  - Energy increased [Unknown]
  - White blood cell count increased [Unknown]
  - Red blood cell count increased [Unknown]
  - Therapeutic response unexpected [Unknown]
